FAERS Safety Report 8243692 (Version 3)
Quarter: 2013Q2

REPORT INFORMATION
  Report Type: Spontaneous
  Country: US (occurrence: US)
  Receive Date: 20111114
  Receipt Date: 20130402
  Transmission Date: 20140414
  Serious: Yes (Hospitalization)
  Sender: FDA-Public Use
  Company Number: US-GLAXOSMITHKLINE-A0877698A

PATIENT
  Age: 55 Year
  Sex: Female
  Weight: 67.7 kg

DRUGS (2)
  1. AVANDIA [Suspect]
     Indication: TYPE 2 DIABETES MELLITUS
     Dosage: 4MG TWICE PER DAY
     Route: 048
     Dates: start: 20030101, end: 20060101
  2. AVANDAMET [Suspect]
     Indication: DIABETES MELLITUS
     Route: 048
     Dates: start: 20060101, end: 20070101

REACTIONS (5)
  - Myocardial ischaemia [Not Recovered/Not Resolved]
  - Blindness unilateral [Unknown]
  - Macular oedema [Unknown]
  - Coronary artery bypass [Unknown]
  - Arterial occlusive disease [Unknown]
